FAERS Safety Report 12188344 (Version 2)
Quarter: 2016Q2

REPORT INFORMATION
  Report Type: Spontaneous
  Country: US (occurrence: US)
  Receive Date: 20160317
  Receipt Date: 20160505
  Transmission Date: 20160815
  Serious: No
  Sender: FDA-Public Use
  Company Number: US-SHIRE-US201603210

PATIENT
  Age: 7 Year
  Sex: Male
  Weight: 24.36 kg

DRUGS (3)
  1. VYVANSE [Suspect]
     Active Substance: LISDEXAMFETAMINE DIMESYLATE
     Indication: ATTENTION DEFICIT/HYPERACTIVITY DISORDER
     Dosage: 10 MG, UNKNOWN
     Route: 048
     Dates: start: 201512, end: 201601
  2. TENEX [Concomitant]
     Active Substance: GUANFACINE HYDROCHLORIDE
     Indication: RESTLESSNESS
     Dosage: UNK ((ONE AND A HALF PILLS A DAY, 1 PIILL IN THE MORNING AND HALF PILL AT NIGHT)), OTHER
     Route: 065
  3. PROZAC [Concomitant]
     Active Substance: FLUOXETINE HYDROCHLORIDE
     Indication: ANXIETY
     Dosage: UNK, UNKNOWN (2.5 ML ADAY)
     Route: 065

REACTIONS (3)
  - Drug ineffective [Recovered/Resolved]
  - Anger [Unknown]
  - Irritability [Recovered/Resolved]

NARRATIVE: CASE EVENT DATE: 201512
